FAERS Safety Report 7280410-8 (Version None)
Quarter: 2011Q1

REPORT INFORMATION
  Report Type: 
  Country: None (occurrence: None)
  Receive Date: 20110208
  Receipt Date: 20110126
  Transmission Date: 20110831
  Serious: Yes (Other)
  Sender: FDA-Public Use
  Company Number: FR-PFIZER INC-2011015130

PATIENT
  Age: 64 Year
  Sex: Female

DRUGS (7)
  1. SIROLIMUS [Interacting]
     Indication: BASAL CELL CARCINOMA
  2. MYCOPHENOLATE MOFETIL [Concomitant]
     Indication: IMMUNOSUPPRESSANT DRUG THERAPY
     Dosage: UNKNOWN
  3. TAHOR [Suspect]
  4. MESALAZINE [Concomitant]
     Dosage: UNKNOWN
  5. ATENOLOL [Concomitant]
     Dosage: UNKNOWN
  6. FUROSEMIDE [Concomitant]
     Dosage: UNKNOWN
  7. SIROLIMUS [Interacting]
     Indication: RENAL TRANSPLANT
     Dosage: UNK
     Dates: start: 20070101, end: 20070801

REACTIONS (4)
  - DIFFUSE ALVEOLAR DAMAGE [None]
  - GRANULOMA [None]
  - PNEUMONIA [None]
  - DRUG INTERACTION [None]
